FAERS Safety Report 6129382-X (Version None)
Quarter: 2009Q1

REPORT INFORMATION
  Report Type: 
  Country: None (occurrence: None)
  Receive Date: 20090324
  Receipt Date: 20090310
  Transmission Date: 20090719
  Serious: Yes (Hospitalization, Other)
  Sender: FDA-Public Use
  Company Number: US-PFIZER INC-2006086658

PATIENT
  Sex: Female

DRUGS (6)
  1. PROVERA [Suspect]
     Indication: HYSTERECTOMY
     Dosage: 10 MG, UNK
     Route: 048
     Dates: start: 19880901, end: 19900501
  2. PROVERA [Suspect]
     Dosage: 2.5 MG, UNK
     Dates: start: 19900501, end: 19900101
  3. PREMARIN [Suspect]
     Indication: HYSTERECTOMY
     Dosage: 0.625 MG, UNK
     Route: 065
     Dates: start: 19880901, end: 19911001
  4. ESTRADERM [Suspect]
     Indication: HYSTERECTOMY
     Dosage: 0.5 MG, UNK
     Dates: start: 19911001, end: 19961101
  5. VIVELLE [Suspect]
     Indication: HYSTERECTOMY
     Dosage: 0.5 MG, UNK
     Dates: start: 19961101, end: 20011101
  6. TOPROL-XL [Concomitant]
     Dosage: 50 MG, 1X/DAY
     Dates: start: 20000101

REACTIONS (2)
  - BREAST CANCER FEMALE [None]
  - GALLBLADDER DISORDER [None]
